FAERS Safety Report 20965768 (Version 1)
Quarter: 2022Q2

REPORT INFORMATION
  Report Type: Report from Study
  Country: US (occurrence: None)
  Receive Date: 20220616
  Receipt Date: 20220616
  Transmission Date: 20220721
  Serious: Yes (Other)
  Sender: FDA-Public Use
  Company Number: US-ROCHE-2908650

PATIENT
  Age: 70 Year
  Sex: Male
  Weight: 72.9 kg

DRUGS (2)
  1. DORNASE ALFA [Suspect]
     Active Substance: DORNASE ALFA
     Indication: COVID-19
     Route: 055
     Dates: start: 20210405
  2. REMDESIVIR [Suspect]
     Active Substance: REMDESIVIR
     Indication: COVID-19
     Route: 042
     Dates: start: 20210406

REACTIONS (3)
  - Aspartate aminotransferase increased [Recovered/Resolved]
  - Off label use [Unknown]
  - Sepsis [Unknown]

NARRATIVE: CASE EVENT DATE: 20210406
